FAERS Safety Report 7370724-5 (Version None)
Quarter: 2011Q1

REPORT INFORMATION
  Report Type: 
  Country: None (occurrence: None)
  Receive Date: 20110323
  Receipt Date: 20110302
  Transmission Date: 20110831
  Serious: Yes (Other)
  Sender: FDA-Public Use
  Company Number: JP-BAYER-2011-019443

PATIENT
  Age: 70 Year
  Sex: Male

DRUGS (2)
  1. CLOPIDOGREL SULFATE [Suspect]
     Indication: ARTERIOSCLEROSIS OBLITERANS
     Route: 048
  2. ASPIRIN [Suspect]
     Indication: ARTERIOSCLEROSIS OBLITERANS

REACTIONS (1)
  - HAEMORRHAGE INTRACRANIAL [None]
